FAERS Safety Report 8241514-6 (Version None)
Quarter: 2012Q1

REPORT INFORMATION
  Report Type: 
  Country: None (occurrence: None)
  Receive Date: 20120328
  Receipt Date: 20110808
  Transmission Date: 20120608
  Serious: Yes (Death, Hospitalization, Other)
  Sender: FDA-Public Use
  Company Number: US-COVIDIEN/TYCO HEALTHCARE/MALLINCKRODT-T201101564

PATIENT
  Age: 48 Year
  Sex: Female

DRUGS (7)
  1. DILAUDID [Suspect]
     Indication: PAIN
     Dosage: UNK
     Dates: start: 20051003, end: 20051003
  2. METHADOSE [Suspect]
     Indication: DRUG DEPENDENCE
     Dosage: UNK
     Dates: start: 20050929
  3. ANTIDEPRESSANTS [Suspect]
     Dosage: UNK
  4. COCAINE [Suspect]
     Dosage: UNK
  5. ANTI-NAUSEA MEDICATION [Suspect]
     Indication: NAUSEA
     Dosage: UNK
     Dates: start: 20051003
  6. MARIJUANA [Suspect]
     Dosage: UNK
  7. LORTAB [Suspect]
     Dosage: LOW, TAPERING DOWN DOSE
     Dates: start: 20051003

REACTIONS (3)
  - COMA [None]
  - WITHDRAWAL SYNDROME [None]
  - OVERDOSE [None]
